FAERS Safety Report 8046402-6 (Version None)
Quarter: 2012Q1

REPORT INFORMATION
  Report Type: 
  Country: None (occurrence: None)
  Receive Date: 20120113
  Receipt Date: 20120109
  Transmission Date: 20120608
  Serious: Yes (Hospitalization)
  Sender: FDA-Public Use
  Company Number: IT-ASTRAZENECA-2012SE01976

PATIENT
  Age: 30052 Day
  Sex: Female

DRUGS (5)
  1. ACEQUIDE [Concomitant]
     Dosage: FILM COATED TABLET 20 MG/12.5 MG
     Route: 048
     Dates: start: 20051029, end: 20110808
  2. INDOMETHACIN [Suspect]
     Indication: PAIN IN EXTREMITY
     Route: 048
     Dates: start: 20110808, end: 20110808
  3. MEPRAL [Suspect]
     Indication: PAIN IN EXTREMITY
     Route: 048
     Dates: start: 20110808, end: 20110808
  4. REMERON [Concomitant]
     Route: 048
     Dates: start: 20081106, end: 20110808
  5. ARVENUM [Concomitant]
     Route: 048

REACTIONS (3)
  - HYPERSENSITIVITY [None]
  - CONFUSIONAL STATE [None]
  - DISORIENTATION [None]
